FAERS Safety Report 6109235-3 (Version None)
Quarter: 2009Q1

REPORT INFORMATION
  Report Type: 
  Country: None (occurrence: None)
  Receive Date: 20090310
  Receipt Date: 20090227
  Transmission Date: 20090719
  Serious: Yes (Other)
  Sender: FDA-Public Use
  Company Number: US-JNJFOC-20090300800

PATIENT
  Sex: Male
  Weight: 105.46 kg

DRUGS (5)
  1. REMICADE [Suspect]
     Indication: COLITIS ULCERATIVE
     Route: 042
  2. REMICADE [Suspect]
     Indication: RHEUMATOID ARTHRITIS
     Route: 042
  3. LIALDA [Concomitant]
     Indication: COLITIS ULCERATIVE
  4. TESTOSTERONE [Concomitant]
     Indication: HYPOTHALAMO-PITUITARY DISORDER
  5. PEPCID AC [Concomitant]

REACTIONS (2)
  - ARTHRALGIA [None]
  - ASTHENIA [None]
